FAERS Safety Report 8251134-5 (Version None)
Quarter: 2012Q2

REPORT INFORMATION
  Report Type: 
  Country: None (occurrence: None)
  Receive Date: 20120402
  Receipt Date: 20120322
  Transmission Date: 20120825
  Serious: Yes (Other)
  Sender: FDA-Public Use
  Company Number: CA-JNJFOC-20120311549

PATIENT
  Sex: Male
  Weight: 75 kg

DRUGS (4)
  1. ASACOL [Concomitant]
     Route: 065
  2. REMICADE [Suspect]
     Indication: COLITIS ULCERATIVE
     Dosage: ONCE EVERY 4-6 WEEKS
     Route: 042
     Dates: start: 20070215
  3. GABAPENTIN [Concomitant]
     Route: 065
  4. NAPROXEN (ALEVE) [Concomitant]
     Route: 065

REACTIONS (2)
  - PERONEAL NERVE PALSY [None]
  - SCIATICA [None]
